FAERS Safety Report 5197175-6 (Version None)
Quarter: 2006Q4

REPORT INFORMATION
  Report Type: 
  Country: None (occurrence: None)
  Receive Date: 20061227
  Receipt Date: 20061214
  Transmission Date: 20070319
  Serious: Yes (Other)
  Sender: FDA-Public Use
  Company Number: 2006154408

PATIENT
  Age: 64 Year
  Sex: Male

DRUGS (4)
  1. LYRICA [Suspect]
     Indication: PAIN
     Dosage: 300 MG (150 MG, 2 IN 1 D), ORAL
     Route: 048
     Dates: start: 20060413
  2. CO-BENELDOPA (BENSERAZIDE HYDROCHLORIDE, LEVODOPA) [Concomitant]
  3. CO-COMADOL (CODEINE PHOSPHATE, PARACETAMOL) [Concomitant]
  4. DICLOFENAC SODIUM [Concomitant]

REACTIONS (5)
  - OEDEMA PERIPHERAL [None]
  - PARKINSON'S DISEASE [None]
  - PITTING OEDEMA [None]
  - RESTLESS LEGS SYNDROME [None]
  - SCIATICA [None]
